FAERS Safety Report 11401549 (Version 4)
Quarter: 2015Q3

REPORT INFORMATION
  Report Type: Report from Study
  Country: US (occurrence: US)
  Receive Date: 20150821
  Receipt Date: 20150921
  Transmission Date: 20151125
  Serious: Yes (Hospitalization)
  Sender: FDA-Public Use
  Company Number: US-ROCHE-1622176

PATIENT
  Age: 59 Year
  Sex: Male
  Weight: 103.42 kg

DRUGS (2)
  1. VEMURAFENIB [Suspect]
     Active Substance: VEMURAFENIB
     Indication: PAPILLARY THYROID CANCER
  2. VEMURAFENIB [Suspect]
     Active Substance: VEMURAFENIB
     Indication: NEOPLASM
     Dosage: DATE OF MOST RECENT DOSE: 12/AUG/2015
     Route: 048
     Dates: start: 20150722

REACTIONS (1)
  - Pleural effusion [Not Recovered/Not Resolved]

NARRATIVE: CASE EVENT DATE: 20150813
